FAERS Safety Report 9819511 (Version 1)
Quarter: 2014Q1

REPORT INFORMATION
  Report Type: Spontaneous
  Country: US (occurrence: None)
  Receive Date: 20140113
  Receipt Date: 20140113
  Transmission Date: 20141002
  Serious: Yes (Other)
  Sender: FDA-Public Use
  Company Number: SYM-2014-14633

PATIENT
  Age: 79 Year
  Sex: Female

DRUGS (6)
  1. ZYCLARA [Suspect]
     Indication: ACTINIC KERATOSIS
     Dosage: CUTANEOUS
     Dates: start: 20131106, end: 20131204
  2. CETRIRZINE (CETIRIZINE) (CETIRIZINE) [Concomitant]
  3. CLENIL MODULITE (BECLOMETASONE DIPROPIONATE) (BECLOMETASONE DIPROPIONATE) [Concomitant]
  4. OMEPRAZOLE (OMEPRAZOLE) (OMEPRAZOLE) [Concomitant]
  5. PREGABALINE (PREGABALINE) (PREGABALIN) [Concomitant]
  6. QUINE SULPHATE (QUINE SULFATE) (QUINE SULFATE) [Concomitant]

REACTIONS (5)
  - Adverse reaction [None]
  - Skin reaction [None]
  - Malaise [None]
  - Decreased appetite [None]
  - Hypophagia [None]
